FAERS Safety Report 11056207 (Version 2)
Quarter: 2015Q2

REPORT INFORMATION
  Report Type: Spontaneous
  Country: US (occurrence: US)
  Receive Date: 20150422
  Receipt Date: 20150601
  Transmission Date: 20150821
  Serious: No
  Sender: FDA-Public Use
  Company Number: US-ASTRAZENECA-2015SE37664

PATIENT
  Sex: Female

DRUGS (1)
  1. NEXIUM 24HR [Suspect]
     Active Substance: ESOMEPRAZOLE MAGNESIUM
     Dosage: TOOK TWO CAPSULES
     Route: 048

REACTIONS (5)
  - Condition aggravated [Unknown]
  - Eructation [Unknown]
  - Dyspepsia [Unknown]
  - Off label use [Unknown]
  - Drug ineffective [Unknown]
